FAERS Safety Report 8993047 (Version 2)
Quarter: 2013Q1

REPORT INFORMATION
  Report Type: Spontaneous
  Country: JP (occurrence: JP)
  Receive Date: 20130102
  Receipt Date: 20130121
  Transmission Date: 20140127
  Serious: Yes (Death, Hospitalization, Other)
  Sender: FDA-Public Use
  Company Number: JP-JNJFOC-20121212012

PATIENT
  Age: 38 Year
  Sex: Male

DRUGS (6)
  1. RISPERDAL CONSTA [Suspect]
     Indication: SCHIZOPHRENIA
     Route: 030
     Dates: start: 20120327, end: 20120925
  2. RISPERDAL [Concomitant]
     Indication: SCHIZOPHRENIA
     Route: 048
     Dates: start: 20120303, end: 20120517
  3. MAGLAX [Concomitant]
     Route: 048
  4. RENIVACE [Concomitant]
     Route: 048
  5. PURSENNID [Concomitant]
     Route: 048
  6. MUCOSTA [Concomitant]
     Route: 048

REACTIONS (6)
  - Renal failure acute [Fatal]
  - Haematemesis [Unknown]
  - Gastric ulcer [Unknown]
  - Water intoxication [Not Recovered/Not Resolved]
  - Diabetes mellitus [Unknown]
  - Polydipsia [Unknown]
